FAERS Safety Report 17598804 (Version 2)
Quarter: 2020Q2

REPORT INFORMATION
  Report Type: Spontaneous
  Country: US (occurrence: US)
  Receive Date: 20200330
  Receipt Date: 20200520
  Transmission Date: 20200713
  Serious: Yes (Hospitalization, Other)
  Sender: FDA-Public Use
  Company Number: US-ASTRAZENECA-2020SE43141

PATIENT
  Sex: Male

DRUGS (1)
  1. SYNAGIS [Suspect]
     Active Substance: PALIVIZUMAB
     Indication: ANTIVIRAL PROPHYLAXIS
     Route: 030
     Dates: start: 20200225

REACTIONS (5)
  - Pneumatosis intestinalis [Unknown]
  - Choking [Unknown]
  - Necrotising colitis [Unknown]
  - Bronchiolitis [Unknown]
  - Respiratory distress [Unknown]
